FAERS Safety Report 4534805-3 (Version None)
Quarter: 2004Q4

REPORT INFORMATION
  Report Type: 
  Country: None (occurrence: None)
  Receive Date: 20041222
  Receipt Date: 20040319
  Transmission Date: 20050328
  Serious: No
  Sender: FDA-Public Use
  Company Number: US-BRISTOL-MYERS SQUIBB COMPANY-12537833

PATIENT
  Age: 65 Year
  Sex: Female

DRUGS (5)
  1. PRAVACHOL [Suspect]
     Indication: BLOOD CHOLESTEROL INCREASED
     Route: 048
     Dates: start: 20040206, end: 20040316
  2. ZETIA [Suspect]
     Route: 048
     Dates: start: 20040206, end: 20040308
  3. VITAMIN E [Concomitant]
  4. VITAMIN C [Concomitant]
  5. VITAMIN B6 [Concomitant]

REACTIONS (3)
  - ARTHRALGIA [None]
  - MYALGIA [None]
  - OEDEMA PERIPHERAL [None]
